FAERS Safety Report 6003687-5 (Version None)
Quarter: 2008Q4

REPORT INFORMATION
  Report Type: 
  Country: None (occurrence: None)
  Receive Date: 20081216
  Receipt Date: 20080603
  Transmission Date: 20090506
  Serious: Yes (Other)
  Sender: FDA-Public Use
  Company Number: US-AMGEN-US277597

PATIENT
  Sex: Female

DRUGS (10)
  1. ARANESP [Suspect]
     Indication: ANAEMIA OF MALIGNANT DISEASE
     Route: 065
  2. WARFARIN SODIUM [Concomitant]
     Route: 065
  3. TACROLIMUS [Concomitant]
     Route: 065
  4. ACYCLOVIR [Concomitant]
     Route: 065
  5. BACTRIM [Concomitant]
     Route: 065
  6. PENICILLIN VK [Concomitant]
     Route: 065
  7. OMEPRAZOLE [Concomitant]
     Route: 065
  8. LEXAPRO [Concomitant]
     Route: 065
  9. AMBIEN [Concomitant]
     Route: 065
  10. ATIVAN [Concomitant]
     Route: 065

REACTIONS (1)
  - THERAPEUTIC RESPONSE DECREASED [None]
